FAERS Safety Report 18627881 (Version 1)
Quarter: 2020Q4

REPORT INFORMATION
  Report Type: Spontaneous
  Country: IL (occurrence: IL)
  Receive Date: 20201217
  Receipt Date: 20201217
  Transmission Date: 20210114
  Serious: Yes (Other)
  Sender: FDA-Public Use
  Company Number: IL-HBP-2020IL021372

PATIENT
  Age: 67 Year
  Sex: Male

DRUGS (2)
  1. AKYNZEO [Suspect]
     Active Substance: NETUPITANT\PALONOSETRON HYDROCHLORIDE
     Indication: PROPHYLAXIS OF NAUSEA AND VOMITING
     Dosage: UNK, UNKNOWN
     Route: 065
  2. IFOSFAMIDE. [Interacting]
     Active Substance: IFOSFAMIDE
     Dosage: UNK UNK., UNKNOWN
     Route: 065

REACTIONS (2)
  - Encephalopathy [Unknown]
  - Drug interaction [Unknown]

NARRATIVE: CASE EVENT DATE: 20201207
